FAERS Safety Report 5480009-X (Version None)
Quarter: 2007Q4

REPORT INFORMATION
  Report Type: 
  Country: None (occurrence: None)
  Receive Date: 20071008
  Receipt Date: 20071001
  Transmission Date: 20080405
  Serious: Yes (Other)
  Sender: FDA-Public Use
  Company Number: CH-PFIZER INC-2007075179

PATIENT
  Sex: Female
  Weight: 63 kg

DRUGS (2)
  1. DETRUSITOL SR [Suspect]
     Indication: INCONTINENCE
     Route: 048
     Dates: start: 20070728, end: 20070808
  2. CIPRALEX [Concomitant]
     Route: 048

REACTIONS (3)
  - ECZEMA [None]
  - RASH PUSTULAR [None]
  - SKIN EXFOLIATION [None]
